FAERS Safety Report 9248778 (Version 1)
Quarter: 2013Q2

REPORT INFORMATION
  Report Type: Spontaneous
  Country: IT (occurrence: IT)
  Receive Date: 20130423
  Receipt Date: 20130423
  Transmission Date: 20140414
  Serious: Yes (Death, Hospitalization, Other)
  Sender: FDA-Public Use
  Company Number: IT-PFIZER INC-2013116763

PATIENT
  Age: 69 Year
  Sex: Male

DRUGS (4)
  1. CISPLATIN [Suspect]
     Indication: HEAD AND NECK CANCER
     Dosage: 0.5 MG/ML
     Route: 041
     Dates: start: 20130226, end: 20130402
  2. DEXAMETHASONE [Concomitant]
     Dosage: 8 MG/2ML
     Route: 042
     Dates: start: 20130226, end: 20130402
  3. ZANTAC [Concomitant]
     Dosage: 50 MG/5 ML
     Route: 042
     Dates: start: 20130226, end: 20130402
  4. ZOFRAN [Concomitant]
     Dosage: 8 MG/4 ML
     Route: 042
     Dates: start: 20130226, end: 20130402

REACTIONS (4)
  - Pancytopenia [Fatal]
  - Asthenia [Fatal]
  - Mucosal inflammation [Fatal]
  - Pyrexia [Fatal]
